FAERS Safety Report 5756469-3 (Version None)
Quarter: 2008Q2

REPORT INFORMATION
  Report Type: 
  Country: None (occurrence: None)
  Receive Date: 20080603
  Receipt Date: 20080527
  Transmission Date: 20081010
  Serious: Yes (Hospitalization)
  Sender: FDA-Public Use
  Company Number: JP-BAYER-200811022BYL

PATIENT
  Age: 37 Year
  Sex: Female

DRUGS (1)
  1. BETAFERON [Suspect]
     Indication: MULTIPLE SCLEROSIS
     Dosage: TOTAL DAILY DOSE: 8 MIU  UNIT DOSE: 9.6 MIU
     Route: 058
     Dates: start: 20060323

REACTIONS (1)
  - LEUKOENCEPHALOPATHY [None]
